FAERS Safety Report 5710132-3 (Version None)
Quarter: 2008Q2

REPORT INFORMATION
  Report Type: 
  Country: None (occurrence: None)
  Receive Date: 20080418
  Receipt Date: 20071120
  Transmission Date: 20081010
  Serious: No
  Sender: FDA-Public Use
  Company Number: US-ASTRAZENECA-2007UW26762

PATIENT
  Age: 67 Year
  Sex: Female
  Weight: 56.7 kg

DRUGS (3)
  1. METOPROLOL SUCCINATE [Suspect]
     Indication: BLOOD PRESSURE
     Dosage: HALF TABLET
     Route: 048
     Dates: start: 20070901
  2. METOPROLOL SUCCINATE [Suspect]
     Dosage: HALF TABLET
     Route: 048
     Dates: start: 20070901
  3. METHOCARBAMOL [Concomitant]

REACTIONS (5)
  - BRADYCARDIA [None]
  - DRUG INEFFECTIVE [None]
  - PANIC ATTACK [None]
  - TINNITUS [None]
  - WRONG TECHNIQUE IN DRUG USAGE PROCESS [None]
